FAERS Safety Report 22650708 (Version 1)
Quarter: 2023Q2

REPORT INFORMATION
  Report Type: Spontaneous
  Country: US (occurrence: US)
  Receive Date: 20230628
  Receipt Date: 20230628
  Transmission Date: 20230721
  Serious: Yes (Hospitalization, Other)
  Sender: FDA-Public Use
  Company Number: US-SPECGX-T202301453

PATIENT
  Age: 26 Year
  Sex: Male

DRUGS (2)
  1. FENTANYL CITRATE [Suspect]
     Active Substance: FENTANYL CITRATE
     Indication: Product used for unknown indication
     Dosage: UNK
     Route: 065
  2. COCAINE [Suspect]
     Active Substance: COCAINE
     Indication: Product used for unknown indication
     Dosage: UNK
     Route: 065

REACTIONS (11)
  - Rhabdomyolysis [Unknown]
  - Hyperphosphataemia [Unknown]
  - Hyperkalaemia [Unknown]
  - Respiratory failure [Unknown]
  - Overdose [Unknown]
  - Jugular vein thrombosis [Unknown]
  - Hypoalbuminaemia [Unknown]
  - Extraskeletal ossification [Unknown]
  - Hypocalcaemia [Unknown]
  - Acute kidney injury [Unknown]
  - Sepsis [Unknown]
